FAERS Safety Report 9717043 (Version 3)
Quarter: 2015Q3

REPORT INFORMATION
  Report Type: Spontaneous
  Country: US (occurrence: US)
  Receive Date: 20131127
  Receipt Date: 20150803
  Transmission Date: 20151125
  Serious: No
  Sender: FDA-Public Use
  Company Number: US-GILEAD-2009-0020335

PATIENT
  Age: 74 Year
  Sex: Female

DRUGS (10)
  1. ISOSORBIDE. [Concomitant]
     Active Substance: ISOSORBIDE
  2. LEVOTHYROXINE. [Concomitant]
     Active Substance: LEVOTHYROXINE
  3. ALLOPURINOL. [Concomitant]
     Active Substance: ALLOPURINOL
  4. LETAIRIS [Suspect]
     Active Substance: AMBRISENTAN
     Indication: PULMONARY ARTERIAL HYPERTENSION
     Route: 048
     Dates: start: 20081014, end: 20090119
  5. FUROSEMIDE. [Concomitant]
     Active Substance: FUROSEMIDE
  6. SIMVASTATIN. [Concomitant]
     Active Substance: SIMVASTATIN
  7. METOPROLOL [Concomitant]
     Active Substance: METOPROLOL
  8. DIOVAN [Concomitant]
     Active Substance: VALSARTAN
  9. DIGOXIN. [Concomitant]
     Active Substance: DIGOXIN
  10. GLIPIZIDE. [Concomitant]
     Active Substance: GLIPIZIDE

REACTIONS (6)
  - Palpitations [Recovered/Resolved]
  - Sinus congestion [Recovered/Resolved]
  - Nasal congestion [Recovered/Resolved]
  - Peripheral swelling [Unknown]
  - Insomnia [Recovered/Resolved]
  - Dyspnoea [Unknown]
